FAERS Safety Report 17434956 (Version 2)
Quarter: 2020Q1

REPORT INFORMATION
  Report Type: Spontaneous
  Country: US (occurrence: US)
  Receive Date: 20200219
  Receipt Date: 20200302
  Transmission Date: 20200409
  Serious: Yes (Death, Hospitalization, Other)
  Sender: FDA-Public Use
  Company Number: US-PFIZER INC-2019152907

PATIENT
  Age: 55 Year
  Sex: Male
  Weight: 63.5 kg

DRUGS (8)
  1. SIMVASTATIN. [Concomitant]
     Active Substance: SIMVASTATIN
     Dosage: UNK
  2. PROGRAF [Concomitant]
     Active Substance: TACROLIMUS
     Dosage: UNK
  3. LEXAPRO [Concomitant]
     Active Substance: ESCITALOPRAM OXALATE
     Dosage: UNK
  4. CELLCEPT [Concomitant]
     Active Substance: MYCOPHENOLATE MOFETIL\MYCOPHENOLATE MOFETIL HYDROCHLORIDE
     Dosage: UNK
  5. KEPPRA [Concomitant]
     Active Substance: LEVETIRACETAM
     Dosage: UNK
  6. RAPAMUNE [Suspect]
     Active Substance: SIROLIMUS
     Indication: RENAL TRANSPLANT
     Dosage: 3 MG, ALTERNATE DAY [3 MG BY MOUTH ONE DAY, NEXT DAY 2 MG BY MOUTH; ALTERNATING DOSE EACH DAY]
     Route: 048
  7. RAPAMUNE [Suspect]
     Active Substance: SIROLIMUS
     Dosage: 2 MG, ALTERNATE DAY [3 MG BY MOUTH ONE DAY, NEXT DAY 2 MG BY MOUTH; ALTERNATING DOSE EACH DAY]
     Route: 048
  8. RAPAMUNE [Suspect]
     Active Substance: SIROLIMUS
     Indication: TRANSPLANT REJECTION
     Dosage: 1 MG, (HE USUALLY GETS 225 WHEN THEY SEND IT)

REACTIONS (3)
  - Renal failure [Unknown]
  - Pneumonia [Fatal]
  - Sepsis [Fatal]
